FAERS Safety Report 15641150 (Version 2)
Quarter: 2018Q4

REPORT INFORMATION
  Report Type: Spontaneous
  Country: JP (occurrence: JP)
  Receive Date: 20181120
  Receipt Date: 20181127
  Transmission Date: 20190205
  Serious: Yes (Death, Life-Threatening)
  Sender: FDA-Public Use
  Company Number: JP-CELGENEUS-JPN-20181106189

PATIENT
  Age: 61 Year
  Sex: Male

DRUGS (3)
  1. REVLIMID [Suspect]
     Active Substance: LENALIDOMIDE
     Indication: PLASMA CELL LEUKAEMIA
     Dosage: 5 MILLIGRAM
     Route: 048
     Dates: start: 20181108, end: 20181110
  2. LENADEX [Suspect]
     Active Substance: DEXAMETHASONE ACETATE
     Indication: PLASMA CELL LEUKAEMIA
     Dosage: 20 MILLIGRAM
     Route: 048
     Dates: start: 20181108
  3. DARZALEX [Suspect]
     Active Substance: DARATUMUMAB
     Indication: PLASMA CELL LEUKAEMIA
     Dosage: 16 MILLIGRAM/KILOGRAM
     Route: 041
     Dates: start: 20181108, end: 20181110

REACTIONS (2)
  - Dysphagia [Unknown]
  - Plasma cell leukaemia [Fatal]

NARRATIVE: CASE EVENT DATE: 2018
